FAERS Safety Report 13739859 (Version 2)
Quarter: 2017Q4

REPORT INFORMATION
  Report Type: Spontaneous
  Country: US (occurrence: US)
  Receive Date: 20170711
  Receipt Date: 20171011
  Transmission Date: 20180320
  Serious: Yes (Hospitalization, Other)
  Sender: FDA-Public Use
  Company Number: US-PIRAMAL CRITICAL CARE LIMITED-2017-PEL-000777

PATIENT

DRUGS (12)
  1. GABLOFEN [Suspect]
     Active Substance: BACLOFEN
     Indication: CEREBRAL PALSY
  2. LIORESAL [Suspect]
     Active Substance: BACLOFEN
     Dosage: 449.7 ?G, QD
     Route: 037
  3. COLACE [Concomitant]
     Active Substance: DOCUSATE SODIUM
     Dosage: UNK
     Route: 065
  4. LIORESAL [Suspect]
     Active Substance: BACLOFEN
     Indication: QUADRIPLEGIA
     Dosage: 574.3 ?G, QD
     Route: 037
  5. VALIUM [Concomitant]
     Active Substance: DIAZEPAM
     Dosage: UNK
     Route: 065
  6. ROZEREM [Concomitant]
     Active Substance: RAMELTEON
     Dosage: UNK
     Route: 065
  7. LIORESAL [Suspect]
     Active Substance: BACLOFEN
     Indication: MUSCLE SPASTICITY
     Dosage: 600.2 ?G, QD
     Route: 037
  8. AMITIZA [Concomitant]
     Active Substance: LUBIPROSTONE
     Dosage: UNK
     Route: 065
  9. THYROID THERAPY [Concomitant]
     Active Substance: UNSPECIFIED INGREDIENT
     Dosage: UNK
     Route: 065
  10. MIRALAX [Concomitant]
     Active Substance: POLYETHYLENE GLYCOL 3350
     Dosage: UNK
     Route: 065
  11. GABLOFEN [Suspect]
     Active Substance: BACLOFEN
     Indication: MUSCLE SPASTICITY
     Dosage: 499.4 ?G, QD
     Route: 037
  12. LIORESAL [Suspect]
     Active Substance: BACLOFEN
     Indication: CEREBRAL PALSY
     Dosage: 400 ?G, QD
     Route: 037

REACTIONS (21)
  - Thyroid disorder [None]
  - Eye disorder [None]
  - Agitation [None]
  - Muscle spasticity [Recovering/Resolving]
  - Soliloquy [Recovering/Resolving]
  - Weight bearing difficulty [Unknown]
  - Device issue [Unknown]
  - Withdrawal syndrome [Recovering/Resolving]
  - Pyrexia [Recovering/Resolving]
  - Depression [Recovering/Resolving]
  - Tremor [Recovering/Resolving]
  - Hyperhidrosis [Unknown]
  - Hypotonia [None]
  - Sleep disorder [Unknown]
  - Speech disorder [None]
  - Decreased appetite [None]
  - Mental status changes [Recovering/Resolving]
  - Dysstasia [Unknown]
  - Dyskinesia [Recovering/Resolving]
  - Hallucination [None]
  - Weight decreased [None]

NARRATIVE: CASE EVENT DATE: 20160122
